FAERS Safety Report 11514879 (Version 1)
Quarter: 2015Q3

REPORT INFORMATION
  Report Type: Spontaneous
  Country: US (occurrence: US)
  Receive Date: 20150916
  Receipt Date: 20150916
  Transmission Date: 20151125
  Serious: No
  Sender: FDA-Public Use
  Company Number: US-BAYER-2015-424590

PATIENT
  Age: 61 Year
  Sex: Male
  Weight: 82.99 kg

DRUGS (2)
  1. CATAFLAM [Concomitant]
     Active Substance: DICLOFENAC POTASSIUM
  2. ALEVE [Suspect]
     Active Substance: NAPROXEN SODIUM
     Indication: MYALGIA
     Dosage: 2 DF, BID
     Route: 048
     Dates: start: 20150914

REACTIONS (1)
  - Extra dose administered [None]

NARRATIVE: CASE EVENT DATE: 20150914
